FAERS Safety Report 7579397-X (Version None)
Quarter: 2011Q2

REPORT INFORMATION
  Report Type: 
  Country: None (occurrence: None)
  Receive Date: 20110629
  Receipt Date: 20110615
  Transmission Date: 20111010
  Serious: Yes (Other)
  Sender: FDA-Public Use
  Company Number: MX-BIOGENIDEC-2011BI022752

PATIENT
  Sex: Female

DRUGS (3)
  1. TYSABRI [Suspect]
     Route: 042
     Dates: start: 20110614
  2. TYSABRI [Suspect]
     Indication: MULTIPLE SCLEROSIS
  3. DOSTINEX [Concomitant]
     Indication: SUPPRESSED LACTATION

REACTIONS (1)
  - AUTOIMMUNE HEPATITIS [None]
